FAERS Safety Report 13208798 (Version 1)
Quarter: 2017Q1

REPORT INFORMATION
  Report Type: Report from Study
  Country: US (occurrence: US)
  Receive Date: 20170209
  Receipt Date: 20170209
  Transmission Date: 20170428
  Serious: Yes (Other)
  Sender: FDA-Public Use
  Company Number: US-MYLANLABS-2017M1008096

PATIENT

DRUGS (3)
  1. PALIFERMIN [Concomitant]
     Active Substance: PALIFERMIN
     Indication: PRODUCT USED FOR UNKNOWN INDICATION
     Dosage: 60MICROG/KG/DAY ON DAY -5, -4, -3, +1, +2 AND +3 DAYS OF THE TRANSPLANTATION
     Route: 040
  2. MELPHALAN [Suspect]
     Active Substance: MELPHALAN
     Indication: PLASMA CELL MYELOMA
     Dosage: 260 MG/M 2 STARTING TWO DAYS BEFORE UNDERGOING THE TRANSPLANTATION
     Route: 065
  3. FILGRASTIM [Concomitant]
     Active Substance: FILGRASTIM
     Indication: PRODUCT USED FOR UNKNOWN INDICATION
     Dosage: 5MICROG/KG/DAY, STARTING ON DAY6 OF THE TRANSPLANTATION
     Route: 058

REACTIONS (1)
  - Stomatitis [Recovered/Resolved]
